FAERS Safety Report 9441513 (Version 1)
Quarter: 2013Q3

REPORT INFORMATION
  Report Type: Spontaneous
  Country: GB (occurrence: GB)
  Receive Date: 20130805
  Receipt Date: 20130805
  Transmission Date: 20140515
  Serious: Yes (Other)
  Sender: FDA-Public Use
  Company Number: GB-MYLANLABS-2013S1016360

PATIENT
  Age: 26 Year
  Sex: Female

DRUGS (1)
  1. FINASTERIDE [Suspect]

REACTIONS (3)
  - Hyperemesis gravidarum [Unknown]
  - Maternal exposure during pregnancy [Unknown]
  - Occupational exposure to product [Unknown]
